FAERS Safety Report 9054935 (Version 1)
Quarter: 2013Q1

REPORT INFORMATION
  Report Type: Spontaneous
  Country: IT (occurrence: IT)
  Receive Date: 20130208
  Receipt Date: 20130208
  Transmission Date: 20140127
  Serious: Yes (Other)
  Sender: FDA-Public Use
  Company Number: IT-JNJFOC-20130117009

PATIENT
  Age: 22 Year
  Sex: Male

DRUGS (9)
  1. DOXORUBICIN [Suspect]
     Indication: NEPHROBLASTOMA
     Dosage: FOR 5 DAYS
     Route: 042
  2. UNSPECIFIED DRUG [Suspect]
     Indication: NEPHROBLASTOMA
     Route: 065
  3. CISPLATIN [Suspect]
     Indication: NEPHROBLASTOMA
     Dosage: FOR 5 DAYS
     Route: 065
  4. ETOPOSIDE [Suspect]
     Indication: NEPHROBLASTOMA
     Dosage: FOR 5 DAYS; TOTAL DOSE OF 1,000 MG/M2
     Route: 065
  5. IFOSFAMIDE [Suspect]
     Indication: NEPHROBLASTOMA
     Dosage: 2.0 G/M2; FOR 5 DAYS
     Route: 065
  6. VINCRISTINE [Suspect]
     Indication: NEPHROBLASTOMA
     Route: 065
  7. MELPHALAN [Suspect]
     Indication: NEPHROBLASTOMA
     Route: 065
  8. VINCRISTINE [Suspect]
     Indication: NEPHROBLASTOMA
     Route: 042
  9. ACTINOMYCIN D [Suspect]
     Indication: NEPHROBLASTOMA
     Route: 065

REACTIONS (2)
  - Salivary gland cancer [Recovered/Resolved]
  - Off label use [Unknown]
